FAERS Safety Report 10149431 (Version 1)
Quarter: 2014Q2

REPORT INFORMATION
  Report Type: Spontaneous
  Country: US (occurrence: None)
  Receive Date: 20140501
  Receipt Date: 20140501
  Transmission Date: 20141212
  Serious: Yes (Life-Threatening)
  Sender: FDA-Public Use
  Company Number: None

PATIENT
  Age: 37 Year
  Sex: Female
  Weight: 74.84 kg

DRUGS (5)
  1. LEUPROLIDE ACETATE [Suspect]
     Indication: IN VITRO FERTILISATION
     Dosage: 14 DAY PATIENT ADMINISTRATION KIT (INJECTION DAILY), ONCE DAILY SUBCUTANEOUS INJECTION, SUBCUTANEOUS INJECTION (BELLY)?
     Route: 058
     Dates: start: 20130920, end: 20131001
  2. CRESTOR [Concomitant]
  3. BIRTH CONTROL PILL [Concomitant]
  4. KRILL OIL [Concomitant]
  5. PROBIOTICS [Concomitant]

REACTIONS (17)
  - Injection site pruritus [None]
  - Injection site erythema [None]
  - Injection site pain [None]
  - Injection site reaction [None]
  - Haemorrhage [None]
  - Nausea [None]
  - Sleep disorder [None]
  - Headache [None]
  - Dizziness [None]
  - Pain [None]
  - Mood altered [None]
  - Dyspepsia [None]
  - Acne [None]
  - Myalgia [None]
  - Arthralgia [None]
  - Bone pain [None]
  - Discomfort [None]
